FAERS Safety Report 18522718 (Version 1)
Quarter: 2020Q4

REPORT INFORMATION
  Report Type: Spontaneous
  Country: US (occurrence: US)
  Receive Date: 20201119
  Receipt Date: 20201119
  Transmission Date: 20210114
  Serious: No
  Sender: FDA-Public Use
  Company Number: US-TEVA-2020-US-1849421

PATIENT
  Age: 47 Year
  Sex: Female
  Weight: 58.97 kg

DRUGS (5)
  1. SUBLOCADE [Concomitant]
     Active Substance: BUPRENORPHINE
  2. MODAFINIL. [Suspect]
     Active Substance: MODAFINIL
     Indication: DRUG DEPENDENCE
  3. WELLBUTRIN [Concomitant]
     Active Substance: BUPROPION HYDROCHLORIDE
  4. GABAPENTIN. [Concomitant]
     Active Substance: GABAPENTIN
  5. MODAFINIL. [Suspect]
     Active Substance: MODAFINIL
     Indication: ATTENTION DEFICIT HYPERACTIVITY DISORDER
     Dosage: 400 MILLIGRAM DAILY;
     Route: 065
     Dates: start: 2020

REACTIONS (3)
  - Drug screen positive [Unknown]
  - Inappropriate schedule of product administration [Unknown]
  - Product use in unapproved indication [Unknown]

NARRATIVE: CASE EVENT DATE: 2020
